FAERS Safety Report 24555998 (Version 1)
Quarter: 2024Q4

REPORT INFORMATION
  Report Type: Spontaneous
  Country: US (occurrence: None)
  Receive Date: 20241026
  Receipt Date: 20241026
  Transmission Date: 20250114
  Serious: Yes (Hospitalization)
  Sender: Public
  Company Number: None

PATIENT
  Sex: Male

DRUGS (1)
  1. TACROLIMUS [Suspect]
     Active Substance: TACROLIMUS
     Indication: Renal transplant
     Dosage: FREQ: TAKE 1 CAPSULE BY MOUTH IN THE MORNING AND TAKE 1 CAPSULE BY MOUTH IN THE EVENING?
     Route: 048
     Dates: start: 20220616

REACTIONS (1)
  - Nephrolithiasis [None]
